FAERS Safety Report 12162992 (Version 1)
Quarter: 2016Q1

REPORT INFORMATION
  Report Type: Report from Study
  Country: MX (occurrence: MX)
  Receive Date: 20160309
  Receipt Date: 20160309
  Transmission Date: 20160526
  Serious: Yes (Disabling)
  Sender: FDA-Public Use
  Company Number: MX-AMGEN-MEXSL2016027735

PATIENT
  Sex: Female

DRUGS (1)
  1. PROLIA [Suspect]
     Active Substance: DENOSUMAB
     Indication: OSTEOPOROSIS
     Dosage: UNK
     Route: 065
     Dates: start: 20150616

REACTIONS (3)
  - Pharyngeal disorder [Recovering/Resolving]
  - Influenza [Unknown]
  - Vocal cord disorder [Unknown]

NARRATIVE: CASE EVENT DATE: 201511
